FAERS Safety Report 18771537 (Version 1)
Quarter: 2021Q1

REPORT INFORMATION
  Report Type: Spontaneous
  Country: US (occurrence: US)
  Receive Date: 20210121
  Receipt Date: 20210121
  Transmission Date: 20210419
  Serious: No
  Sender: FDA-Public Use
  Company Number: US-PERRIGO-20US007461

PATIENT
  Sex: Female

DRUGS (3)
  1. IBUPROFEN. [Suspect]
     Active Substance: IBUPROFEN
     Indication: BONE PAIN
     Dosage: 200 TO 400 MG, 1 TO 3 TIMES DAILY
     Route: 048
     Dates: end: 20200519
  2. IBUPROFEN. [Suspect]
     Active Substance: IBUPROFEN
     Indication: BONE PAIN
     Dosage: 200 TO 400 MG, 1 TO 3 TIMES DAILY
     Route: 048
     Dates: start: 2020, end: 2020
  3. IBUPROFEN. [Suspect]
     Active Substance: IBUPROFEN
     Dosage: 200 TO 400 MG, 1 TO 3 TIMES DAILY
     Route: 048
     Dates: start: 2020, end: 2020

REACTIONS (4)
  - Incorrect product administration duration [Recovered/Resolved]
  - Therapeutic product effect variable [Unknown]
  - Expired product administered [Recovered/Resolved]
  - Malaise [Recovered/Resolved]

NARRATIVE: CASE EVENT DATE: 2020
